FAERS Safety Report 7186479-3 (Version None)
Quarter: 2010Q4

REPORT INFORMATION
  Report Type: 
  Country: None (occurrence: None)
  Receive Date: 20101222
  Receipt Date: 20101214
  Transmission Date: 20110411
  Serious: Yes (Other)
  Sender: FDA-Public Use
  Company Number: US-PFIZER INC-2010172044

PATIENT
  Sex: Male
  Weight: 125 kg

DRUGS (8)
  1. LYRICA [Suspect]
     Indication: FIBROMYALGIA
     Dosage: 75 MG, 2X/DAY
     Route: 048
     Dates: start: 20090101
  2. CELEBREX [Concomitant]
     Dosage: 100 MG, 2X/DAY
  3. PRISTIQ [Concomitant]
     Indication: DEPRESSION
     Dosage: 100 MG, 1X/DAY
  4. LORAZEPAM [Concomitant]
     Indication: DEPRESSION
     Dosage: 2 MG, DAILY
  5. GLYBURIDE [Concomitant]
     Indication: DIABETES MELLITUS
     Dosage: 5 MG, 2X/DAY
  6. SITAGLIPTIN [Concomitant]
     Indication: DIABETES MELLITUS
     Dosage: 100 MG, 1X/DAY
  7. PROPRANOLOL [Concomitant]
     Indication: HYPERTENSION
     Dosage: UNK
  8. PRAVASTATIN [Concomitant]
     Indication: BLOOD CHOLESTEROL INCREASED
     Dosage: 40 MG, 1X/DAY

REACTIONS (4)
  - ANXIETY [None]
  - BLOOD GLUCOSE INCREASED [None]
  - DEPRESSION [None]
  - INSOMNIA [None]
